FAERS Safety Report 13755361 (Version 1)
Quarter: 2017Q3

REPORT INFORMATION
  Report Type: Spontaneous
  Country: US (occurrence: US)
  Receive Date: 20170714
  Receipt Date: 20170714
  Transmission Date: 20171127
  Serious: Yes (Death)
  Sender: FDA-Public Use
  Company Number: US-ELI_LILLY_AND_COMPANY-US201707003216

PATIENT
  Age: 35 Year

DRUGS (1)
  1. ZYPREXA [Suspect]
     Active Substance: OLANZAPINE
     Indication: PRODUCT USED FOR UNKNOWN INDICATION
     Dosage: UNK, UNKNOWN
     Route: 065

REACTIONS (6)
  - Pain [Fatal]
  - Oesophageal disorder [Fatal]
  - Metal poisoning [Fatal]
  - Seizure [Fatal]
  - Gastrointestinal disorder [Fatal]
  - Chemical poisoning [Fatal]
